FAERS Safety Report 8486033-7 (Version None)
Quarter: 2012Q3

REPORT INFORMATION
  Report Type: 
  Country: None (occurrence: None)
  Receive Date: 20120703
  Receipt Date: 20120701
  Transmission Date: 20120928
  Serious: No
  Sender: FDA-Public Use
  Company Number: US-PFIZER INC-2012157562

PATIENT
  Age: 48 Year
  Sex: Female

DRUGS (1)
  1. PRISTIQ [Suspect]
     Dosage: UNK, 1X/DAY
     Route: 048
     Dates: start: 20120601

REACTIONS (1)
  - FATIGUE [None]
